FAERS Safety Report 24387359 (Version 1)
Quarter: 2024Q4

REPORT INFORMATION
  Report Type: Spontaneous
  Country: BR (occurrence: BR)
  Receive Date: 20241002
  Receipt Date: 20241002
  Transmission Date: 20250115
  Serious: Yes (Other)
  Sender: ZYDUS PHARM
  Company Number: BR-CADILA HEALTHCARE LIMITED-BR-ZYDUS-112574

PATIENT

DRUGS (16)
  1. CARVEDILOL [Interacting]
     Active Substance: CARVEDILOL
     Indication: Hypertension
     Dosage: 6.25 MILLIGRAM PER DAY
     Route: 048
  2. LOSARTAN [Interacting]
     Active Substance: LOSARTAN
     Indication: Hypertension
     Dosage: 50 MILLIGRAM, QD, IN MORNING
     Route: 048
  3. LOSARTAN [Interacting]
     Active Substance: LOSARTAN
     Dosage: 25 MILLIGRAM, QD,IN EVENING
     Route: 048
  4. SEMAGLUTIDE [Interacting]
     Active Substance: SEMAGLUTIDE
     Indication: Type 2 diabetes mellitus
     Dosage: 0.25 MILLIGRAM PER WEEK
     Route: 058
  5. SEMAGLUTIDE [Interacting]
     Active Substance: SEMAGLUTIDE
     Dosage: 0.5 MILLIGRAM, PER WEEK
     Route: 065
  6. SITAGLIPTIN [Interacting]
     Active Substance: SITAGLIPTIN
     Indication: Type 2 diabetes mellitus
     Dosage: 100 MILLIGRAM PER DAY,TABLET
     Route: 048
  7. DAPAGLIFLOZIN [Interacting]
     Active Substance: DAPAGLIFLOZIN
     Indication: Type 2 diabetes mellitus
     Dosage: 10 MILLIGRAM PER DAY,  BEFORE LUNCH
     Route: 048
  8. METFORMIN [Interacting]
     Active Substance: METFORMIN HYDROCHLORIDE
     Indication: Type 2 diabetes mellitus
     Dosage: 1000 MILLIGRAM, BID, BEFORE BREAKFAST AND BEFORE LUNCH
     Route: 048
  9. PIOGLITAZONE [Interacting]
     Active Substance: PIOGLITAZONE
     Indication: Type 2 diabetes mellitus
     Dosage: 30 MILLIGRAM PER DAY, BEFORE DINNER
     Route: 048
  10. ASPIRIN [Interacting]
     Active Substance: ASPIRIN
     Indication: Prophylaxis
     Dosage: 100 MILLIGRAM PER DAY, LOW-DOSE
     Route: 065
  11. VARDENAFIL [Interacting]
     Active Substance: VARDENAFIL HYDROCHLORIDE
     Indication: Product used for unknown indication
     Dosage: 20 MILLIGRAM,AS NEEDED, 45 MIN BEFORE SEXUAL INTERCOURSE
     Route: 065
  12. CHOLECALCIFEROL [Interacting]
     Active Substance: CHOLECALCIFEROL
     Indication: Vitamin D deficiency
     Dosage: 7000 INTERNATIONAL UNIT, PER DAY
     Route: 065
  13. ROSUVASTATIN [Interacting]
     Active Substance: ROSUVASTATIN
     Indication: Hypercholesterolaemia
     Dosage: 10 MILLIGRAM, QD
     Route: 065
  14. TESTOSTERONE [Interacting]
     Active Substance: TESTOSTERONE
     Indication: Hormone replacement therapy
     Dosage: 50 MILLIGRAM PER DAY, GEL
     Route: 062
  15. METFORMIN\SITAGLIPTIN [Interacting]
     Active Substance: METFORMIN\SITAGLIPTIN
     Indication: Type 2 diabetes mellitus
     Dosage: 100 MG/1000 MG; BEFORE BREAKFAST
     Route: 065
  16. DAPAGLIFLOZIN PROPANEDIOL\METFORMIN HYDROCHLORIDE [Interacting]
     Active Substance: DAPAGLIFLOZIN PROPANEDIOL\METFORMIN HYDROCHLORIDE
     Indication: Type 2 diabetes mellitus
     Dosage: (10 MG/ 1000 MG; BEFORE LUNCH
     Route: 065

REACTIONS (2)
  - Cutaneous vasculitis [Recovered/Resolved]
  - Drug interaction [Unknown]
